FAERS Safety Report 15053170 (Version 3)
Quarter: 2018Q3

REPORT INFORMATION
  Report Type: Report from Study
  Country: US (occurrence: US)
  Receive Date: 20180622
  Receipt Date: 20180905
  Transmission Date: 20181010
  Serious: Yes (Hospitalization, Other)
  Sender: FDA-Public Use
  Company Number: US-ACTELION-A-NJ2018-174069

PATIENT
  Age: 55 Year
  Sex: Female
  Weight: 53.61 kg

DRUGS (2)
  1. VELETRI [Suspect]
     Active Substance: EPOPROSTENOL
     Indication: PULMONARY ARTERIAL HYPERTENSION
     Dosage: 51 NG/KG, PER MIN
     Route: 042
  2. OPSUMIT [Suspect]
     Active Substance: MACITENTAN
     Indication: PULMONARY ARTERIAL HYPERTENSION
     Dosage: 10 MG, QD
     Route: 048

REACTIONS (7)
  - Hypotension [Unknown]
  - Neoplasm malignant [Unknown]
  - Catheter management [Unknown]
  - Weight decreased [Unknown]
  - Malaise [Unknown]
  - Dyspnoea [Unknown]
  - Catheter site discharge [Unknown]
